FAERS Safety Report 20374882 (Version 1)
Quarter: 2022Q1

REPORT INFORMATION
  Report Type: Spontaneous
  Country: US (occurrence: None)
  Receive Date: 20220124
  Receipt Date: 20220124
  Transmission Date: 20220423
  Serious: Yes (Hospitalization, Disabling, Other)
  Sender: FDA-Public Use
  Company Number: None

PATIENT
  Age: 48 Year
  Sex: Male
  Weight: 86.85 kg

DRUGS (5)
  1. BUPROPION [Suspect]
     Active Substance: BUPROPION
     Indication: Depression
     Route: 048
     Dates: start: 20211206, end: 20220105
  2. clopidogrol [Concomitant]
  3. LISINOPRIL [Concomitant]
     Active Substance: LISINOPRIL
  4. ASPIRIN [Concomitant]
     Active Substance: ASPIRIN
  5. UNSPECIFIED INGREDIENT [Concomitant]
     Active Substance: UNSPECIFIED INGREDIENT

REACTIONS (5)
  - Cardiac operation [None]
  - Dyspnoea [None]
  - Chest discomfort [None]
  - Blood pressure increased [None]
  - Eye pain [None]

NARRATIVE: CASE EVENT DATE: 20220114
